FAERS Safety Report 7090824-7 (Version None)
Quarter: 2010Q4

REPORT INFORMATION
  Report Type: 
  Country: None (occurrence: None)
  Receive Date: 20101109
  Receipt Date: 20101029
  Transmission Date: 20110411
  Serious: Yes (Death)
  Sender: FDA-Public Use
  Company Number: US-BAXTER-2010BH026887

PATIENT
  Sex: Male

DRUGS (7)
  1. DIANEAL [Suspect]
     Indication: PERITONEAL DIALYSIS
     Route: 033
     Dates: start: 20090713, end: 20101028
  2. DIANEAL [Suspect]
     Route: 033
     Dates: start: 20090713, end: 20101028
  3. DIANEAL [Suspect]
     Route: 033
     Dates: start: 20090713, end: 20101028
  4. DIANEAL [Suspect]
     Route: 033
     Dates: start: 20090713, end: 20101028
  5. DIANEAL [Suspect]
     Indication: PERITONEAL DIALYSIS
     Route: 033
     Dates: start: 20090713, end: 20101028
  6. DIANEAL [Suspect]
     Route: 033
     Dates: start: 20090713, end: 20101028
  7. DIANEAL [Suspect]
     Route: 033
     Dates: start: 20090713, end: 20101028

REACTIONS (2)
  - NEOPLASM MALIGNANT [None]
  - RENAL FAILURE CHRONIC [None]
